FAERS Safety Report 6631859-5 (Version None)
Quarter: 2010Q1

REPORT INFORMATION
  Report Type: 
  Country: None (occurrence: None)
  Receive Date: 20100310
  Receipt Date: 20100223
  Transmission Date: 20100710
  Serious: Yes (Other)
  Sender: FDA-Public Use
  Company Number: 2010SCPR000372

PATIENT
  Sex: Male

DRUGS (4)
  1. RISPERIDONE [Suspect]
     Indication: DRUG USE FOR UNKNOWN INDICATION
     Dosage: ORAL
     Route: 048
  2. RISPERIDONE (RISPERIDONE) INJECTION [Suspect]
     Indication: DRUG USE FOR UNKNOWN INDICATION
     Dosage: PARENTERAL
     Route: 051
  3. COCAINE (COCAINE) UNKNOWN [Suspect]
     Indication: DRUG USE FOR UNKNOWN INDICATION
  4. ALCOHOL (ETHANOL) UNKNOWN [Suspect]
     Indication: DRUG USE FOR UNKNOWN INDICATION

REACTIONS (3)
  - AMPUTATION OF PENIS [None]
  - PENILE NECROSIS [None]
  - PRIAPISM [None]
